FAERS Safety Report 7747203-6 (Version None)
Quarter: 2011Q3

REPORT INFORMATION
  Report Type: 
  Country: None (occurrence: None)
  Receive Date: 20110913
  Receipt Date: 20110908
  Transmission Date: 20111222
  Serious: Yes (Hospitalization)
  Sender: FDA-Public Use
  Company Number: FR-PFIZER INC-2011210313

PATIENT
  Age: 87 Year
  Sex: Female

DRUGS (11)
  1. FUROSEMIDE [Interacting]
     Dosage: 40 MG, 2X/DAY
     Route: 048
  2. OMEPRAZOLE [Concomitant]
     Dosage: UNK
     Route: 048
  3. LORAZEPAM [Concomitant]
     Indication: ANXIETY
     Dosage: 1 MG, 1X/DAY
     Route: 048
     Dates: end: 20110814
  4. POTASSIUM CHLORIDE [Concomitant]
     Indication: HYPOKALAEMIA
     Dosage: 1000 MG, 1X/DAY
     Route: 048
     Dates: end: 20110814
  5. CARVEDILOL [Concomitant]
     Indication: CARDIAC FAILURE
     Dosage: 6.25 MG, 2X/DAY
     Route: 048
  6. PREVISCAN [Concomitant]
     Dosage: 10 MG, 1X/DAY (UNTIL 3/4 DF DAILY)
     Route: 048
  7. ALDACTONE [Suspect]
     Indication: HYPERTENSION
     Dosage: 50 MG, 1X/DAY
     Route: 048
     Dates: start: 20110804, end: 20110814
  8. PERINDOPRIL ERBUMINE [Interacting]
     Dosage: 5 MG, 1X/DAY
     Route: 048
     Dates: end: 20110814
  9. ASPIRIN [Concomitant]
     Dosage: 75 MG, 1X/DAY
     Route: 048
  10. ATORVASTATIN CALCIUM [Concomitant]
     Indication: HYPERCHOLESTEROLAEMIA
     Dosage: 10 MG, 1X/DAY
     Route: 048
  11. CORDARONE [Concomitant]
     Indication: VENTRICULAR TACHYCARDIA
     Dosage: 200 MG, 1X/DAY
     Route: 048

REACTIONS (2)
  - RENAL FAILURE ACUTE [None]
  - DRUG INTERACTION [None]
